FAERS Safety Report 8849074 (Version 3)
Quarter: 2013Q2

REPORT INFORMATION
  Report Type: Report from Study
  Country: DE (occurrence: DE)
  Receive Date: 20121019
  Receipt Date: 20130415
  Transmission Date: 20140414
  Serious: Yes (Death)
  Sender: FDA-Public Use
  Company Number: DE-MILLENNIUM PHARMACEUTICALS, INC.-2012-07020

PATIENT
  Sex: 0

DRUGS (12)
  1. VELCADE [Suspect]
     Indication: PLASMA CELL MYELOMA
     Dosage: 1.3 MG/M2, CYCLIC
     Route: 058
     Dates: start: 20120421, end: 20120713
  2. MORPHINE [Concomitant]
     Indication: PAIN
     Dosage: 5 DROPS 4/D
     Dates: start: 20120618, end: 20120626
  3. NOVALGIN                           /06276704/ [Concomitant]
     Indication: PAIN
     Dosage: 30 DROPS 4/D
     Dates: start: 20120618
  4. HYDROMORPHONE [Concomitant]
     Indication: PAIN
     Dosage: 8 MG, UNK
     Dates: start: 20120627
  5. PALLADONE                          /00080902/ [Concomitant]
     Indication: PAIN
     Dosage: 1.3 MG, UNK
     Dates: start: 20120627
  6. ACICLOVIR [Concomitant]
     Dosage: 200 MG, UNK
     Dates: start: 20120627
  7. ZYVOXID [Concomitant]
     Dosage: 1200 MG, UNK
     Dates: start: 20120727, end: 20120816
  8. BISOPROLOL [Concomitant]
     Indication: CARDIAC FAILURE
     Dosage: UNK
     Dates: start: 201208
  9. FUROSEMID                          /00032601/ [Concomitant]
     Indication: CARDIAC FAILURE
     Dosage: UNK
     Dates: start: 201208
  10. RAMIPRIL [Concomitant]
     Indication: CARDIAC FAILURE
     Dosage: UNK
     Dates: start: 201208
  11. ENDOXAN /00021101/ [Concomitant]
     Indication: PLASMA CELL MYELOMA
     Dosage: 900 MG/M2, UNK
     Route: 042
     Dates: start: 20120421
  12. FORTECORTIN                        /00016001/ [Concomitant]
     Indication: PLASMA CELL MYELOMA
     Dosage: 40 MG, UNK
     Route: 048
     Dates: start: 20120421

REACTIONS (1)
  - Death [Fatal]
